FAERS Safety Report 9306391 (Version 1)
Quarter: 2013Q2

REPORT INFORMATION
  Report Type: Spontaneous
  Country: US (occurrence: US)
  Receive Date: 20130523
  Receipt Date: 20130523
  Transmission Date: 20140414
  Serious: Yes (Hospitalization)
  Sender: FDA-Public Use
  Company Number: US-BAYER-2013-063960

PATIENT
  Age: 26 Year
  Sex: Female
  Weight: 50.79 kg

DRUGS (11)
  1. YAZ [Suspect]
  2. OCELLA [Suspect]
  3. YASMIN [Suspect]
  4. IMITREX [Concomitant]
     Indication: MIGRAINE
  5. PROZAC [Concomitant]
     Dosage: UNK
     Dates: start: 20100315, end: 20100623
  6. XANAX [Concomitant]
     Dosage: UNK
     Dates: start: 20100502
  7. AZITHROMYCIN [Concomitant]
     Dosage: UNK
     Dates: start: 20100309
  8. LEVAQUIN [Concomitant]
     Dosage: UNK
     Dates: start: 20100315
  9. SERTRALINE [Concomitant]
  10. FLUOXETINE [Concomitant]
  11. VICODIN [Concomitant]

REACTIONS (2)
  - Pelvic venous thrombosis [None]
  - Pulmonary embolism [None]
